FAERS Safety Report 8102486-8 (Version None)
Quarter: 2012Q1

REPORT INFORMATION
  Report Type: 
  Country: None (occurrence: None)
  Receive Date: 20120126
  Receipt Date: 20120112
  Transmission Date: 20120608
  Serious: Yes (Hospitalization)
  Sender: FDA-Public Use
  Company Number: 2011-000005

PATIENT
  Age: 81 Year
  Sex: Female

DRUGS (2)
  1. ALL OTHER THERAPEUTIC PRODUCTS [Concomitant]
  2. ESTRACE [Suspect]
     Indication: BLADDER DISORDER
     Dosage: ONLY USED CREAM 4 TIMES, VAGINAL
     Route: 067
     Dates: start: 20111114, end: 20111121

REACTIONS (9)
  - ABDOMINAL DISTENSION [None]
  - CARDIAC FAILURE CONGESTIVE [None]
  - BRONCHITIS [None]
  - HEADACHE [None]
  - FLUID RETENTION [None]
  - BLOOD PRESSURE INCREASED [None]
  - DIZZINESS [None]
  - BLOOD SODIUM DECREASED [None]
  - PALPITATIONS [None]
